FAERS Safety Report 18728061 (Version 1)
Quarter: 2021Q1

REPORT INFORMATION
  Report Type: Spontaneous
  Country: US (occurrence: US)
  Receive Date: 20210111
  Receipt Date: 20210111
  Transmission Date: 20210419
  Serious: Yes (Hospitalization, Other)
  Sender: FDA-Public Use
  Company Number: US-LUPIN PHARMACEUTICALS INC.-2020-11670

PATIENT
  Age: 59 Year
  Sex: Male

DRUGS (5)
  1. TESTOSTERONE. [Concomitant]
     Active Substance: TESTOSTERONE
     Indication: EMPTY SELLA SYNDROME
     Route: 065
  2. TUMS [Interacting]
     Active Substance: CALCIUM CARBONATE
     Indication: GASTROOESOPHAGEAL REFLUX DISEASE
     Dosage: 2000 MILLIGRAM, BID
     Route: 065
  3. ZANTAC [Concomitant]
     Active Substance: RANITIDINE HYDROCHLORIDE
     Indication: GASTROOESOPHAGEAL REFLUX DISEASE
     Dosage: UNK
     Route: 065
  4. CALCIUM [Suspect]
     Active Substance: CALCIUM
     Indication: OSTEOPENIA
     Dosage: 500 MILLIGRAM, QD
     Route: 048
  5. VITAMIN D3 [Interacting]
     Active Substance: CHOLECALCIFEROL
     Indication: OSTEOPENIA
     Dosage: 400 INTERNATIONAL UNIT
     Route: 048

REACTIONS (4)
  - Metabolic alkalosis [Recovering/Resolving]
  - Drug interaction [Unknown]
  - Milk-alkali syndrome [Recovering/Resolving]
  - Acute kidney injury [Recovered/Resolved]
